FAERS Safety Report 7798625-9 (Version None)
Quarter: 2011Q4

REPORT INFORMATION
  Report Type: 
  Country: None (occurrence: None)
  Receive Date: 20111005
  Receipt Date: 20110926
  Transmission Date: 20120403
  Serious: Yes (Hospitalization, Other)
  Sender: FDA-Public Use
  Company Number: US-CELGENEUS-163-21880-11073012

PATIENT
  Sex: Female
  Weight: 65.8 kg

DRUGS (18)
  1. DEXAMETHASONE [Concomitant]
     Dosage: 4 MILLIGRAM
     Route: 048
  2. ATENOLOL [Concomitant]
     Dosage: 25 MILLIGRAM
     Route: 048
  3. REVLIMID [Suspect]
     Dosage: 5 MILLIGRAM
     Route: 048
     Dates: start: 20110801
  4. LORAZEPAM [Concomitant]
     Indication: ANXIETY
  5. CENTRUM SILVER WOMEN'S [Concomitant]
     Dosage: 1 TABLET
     Route: 065
  6. DILTIAZEM HCL [Concomitant]
     Dosage: 60 MILLIGRAM
     Route: 048
  7. LORAZEPAM [Concomitant]
  8. DEXAMETHASONE [Concomitant]
     Route: 065
     Dates: start: 20110713, end: 20110713
  9. REVLIMID [Suspect]
     Dosage: 5 MILLIGRAM
     Route: 048
     Dates: start: 20110822
  10. LORAZEPAM [Concomitant]
     Indication: NAUSEA
     Dosage: 1-2 TABS
     Route: 060
  11. PROCHLORPERAZINE [Concomitant]
     Indication: NAUSEA
     Dosage: 10 MILLIGRAM
     Route: 048
  12. CALCIUM WITH D K [Concomitant]
     Dosage: 750 MILLIGRAM
     Route: 065
  13. REVLIMID [Suspect]
     Indication: MULTIPLE MYELOMA
     Dosage: 25 MILLIGRAM
     Route: 048
     Dates: start: 20110713, end: 20110715
  14. ASPIRIN [Concomitant]
     Dosage: 81 MILLIGRAM
     Route: 065
  15. LORAZEPAM [Concomitant]
     Indication: VOMITING
  16. VITAMIN D [Concomitant]
     Dosage: 1000 MILLIGRAM
     Route: 048
  17. ASPIRIN [Concomitant]
     Dosage: 162 MILLIGRAM
     Route: 048
  18. PROCHLORPERAZINE [Concomitant]
     Indication: VOMITING

REACTIONS (5)
  - IRRITABILITY [None]
  - DIARRHOEA [None]
  - FATIGUE [None]
  - LEUKOPENIA [None]
  - SUPRAVENTRICULAR TACHYCARDIA [None]
